FAERS Safety Report 6962776-9 (Version None)
Quarter: 2010Q3

REPORT INFORMATION
  Report Type: 
  Country: None (occurrence: None)
  Receive Date: 20100823
  Receipt Date: 20100630
  Transmission Date: 20110219
  Serious: No
  Sender: FDA-Public Use
  Company Number: 014742

PATIENT
  Sex: Female
  Weight: 100 kg

DRUGS (5)
  1. CIMZIA [Suspect]
     Indication: CROHN'S DISEASE
     Dosage: (400 MG 1X/MONTH SUBCUTANEOUS)
     Route: 058
     Dates: start: 20091106
  2. ASACOL [Concomitant]
  3. OMEPRAZOLE [Concomitant]
  4. CLARITIN /00917501/ [Concomitant]
  5. MULTI-VITAMINS [Concomitant]

REACTIONS (3)
  - LARYNGITIS [None]
  - OROPHARYNGEAL PAIN [None]
  - SINUSITIS [None]
